FAERS Safety Report 6915348-6 (Version None)
Quarter: 2010Q3

REPORT INFORMATION
  Report Type: 
  Country: None (occurrence: None)
  Receive Date: 20100809
  Receipt Date: 20100126
  Transmission Date: 20110219
  Serious: No
  Sender: FDA-Public Use
  Company Number: US-ABBOTT-10P-163-0623436-00

PATIENT
  Age: 50 Year
  Sex: Male

DRUGS (3)
  1. DEPAKOTE ER [Suspect]
     Indication: PRODUCT USED FOR UNKNOWN INDICATION
     Dosage: 1500 MG DAILY
  2. CLOZARIL [Concomitant]
     Indication: PRODUCT USED FOR UNKNOWN INDICATION
  3. LEXAPRO [Concomitant]
     Indication: PRODUCT USED FOR UNKNOWN INDICATION

REACTIONS (1)
  - OEDEMA PERIPHERAL [None]
